FAERS Safety Report 4517792-3 (Version None)
Quarter: 2004Q4

REPORT INFORMATION
  Report Type: 
  Country: None (occurrence: None)
  Receive Date: 20041203
  Receipt Date: 20041124
  Transmission Date: 20050328
  Serious: Yes (Hospitalization)
  Sender: FDA-Public Use
  Company Number: FR-ROCHE-387157

PATIENT
  Age: 90 Year
  Sex: Female
  Weight: 80 kg

DRUGS (6)
  1. ROCEPHIN [Suspect]
     Indication: DRUG USE FOR UNKNOWN INDICATION
     Dosage: FORMULATION: INJECTABLE SOLUTION
     Route: 042
     Dates: start: 20040215, end: 20040217
  2. PULMICORT [Suspect]
     Dosage: DRUG NAME REPORTED AS PULMICORT 0,50/2ML
     Route: 055
     Dates: start: 20040213, end: 20040214
  3. AUGMENTIN '125' [Suspect]
     Route: 048
     Dates: start: 20040213, end: 20040214
  4. NOLVADEX [Concomitant]
     Route: 048
     Dates: start: 19990615
  5. SOLUPRED [Concomitant]
     Dosage: DRUG NAME REPORTED AS SOLUPRED 20
     Route: 048
     Dates: end: 20040214
  6. LASILIX 40 [Concomitant]
     Route: 048

REACTIONS (3)
  - COUGH [None]
  - DRUG ERUPTION [None]
  - TOXIC SKIN ERUPTION [None]
